FAERS Safety Report 6818492-7 (Version None)
Quarter: 2010Q3

REPORT INFORMATION
  Report Type: 
  Country: None (occurrence: None)
  Receive Date: 20100706
  Receipt Date: 20080910
  Transmission Date: 20110219
  Serious: No
  Sender: FDA-Public Use
  Company Number: US-PFIZER INC-2008077630

PATIENT
  Age: 12 Year
  Sex: Female
  Weight: 47.7 kg

DRUGS (3)
  1. ZITHROMAX [Suspect]
     Indication: BRONCHITIS
     Dates: start: 20080723
  2. XOPENEX [Suspect]
     Indication: ASTHMA
     Dosage: 0.63MG/3ML
     Route: 055
     Dates: start: 20020101
  3. MONTELUKAST [Concomitant]

REACTIONS (7)
  - DIZZINESS [None]
  - DIZZINESS POSTURAL [None]
  - FEELING ABNORMAL [None]
  - HEADACHE [None]
  - LISTLESS [None]
  - MUSCULAR WEAKNESS [None]
  - SOMNOLENCE [None]
